FAERS Safety Report 15557169 (Version 2)
Quarter: 2018Q4

REPORT INFORMATION
  Report Type: Spontaneous
  Country: US (occurrence: US)
  Receive Date: 20181026
  Receipt Date: 20181206
  Transmission Date: 20190205
  Serious: Yes (Other)
  Sender: FDA-Public Use
  Company Number: US-SUNOVION-2018SUN004179

PATIENT

DRUGS (1)
  1. LATUDA [Suspect]
     Active Substance: LURASIDONE HYDROCHLORIDE
     Dosage: UNK
     Route: 048
     Dates: start: 201810

REACTIONS (5)
  - Restlessness [Unknown]
  - Suicidal ideation [Unknown]
  - Agitation [Unknown]
  - Intentional self-injury [Unknown]
  - Depression [Unknown]

NARRATIVE: CASE EVENT DATE: 20181019
